FAERS Safety Report 9475603 (Version 1)
Quarter: 2013Q3

REPORT INFORMATION
  Report Type: Report from Study
  Country: US (occurrence: US)
  Receive Date: 20130826
  Receipt Date: 20130826
  Transmission Date: 20140515
  Serious: Yes (Hospitalization)
  Sender: FDA-Public Use
  Company Number: PHHY2013US091304

PATIENT
  Age: 53 Year
  Sex: Female

DRUGS (12)
  1. GILENYA [Suspect]
     Indication: MULTIPLE SCLEROSIS
     Dosage: 0.5 MG, QD
     Route: 048
     Dates: start: 20110110, end: 20110325
  2. DEPAKOTE [Concomitant]
     Dosage: 250 MG, UNK
  3. METOPROLOL TARTRATE [Concomitant]
     Dosage: 25 MG, UNK
  4. ALPRAZOLAM [Concomitant]
     Dosage: 0.5 MG, UNK
  5. PRILOSEC [Concomitant]
     Dosage: 20 MG, UNK
  6. ZOCOR [Concomitant]
     Dosage: 10 MG, UNK
  7. BABY ASPIRIN [Concomitant]
     Dosage: 81 MG, UNK
  8. ACETAMINOPHEN W/OXYCODONE [Concomitant]
  9. XANAX [Concomitant]
     Dosage: 0.5 MG, UNK
  10. SELENIUM [Concomitant]
     Dates: start: 20110112
  11. VERAPAMIL [Concomitant]
  12. PROTONIX [Concomitant]

REACTIONS (7)
  - Status migrainosus [Unknown]
  - Arterial spasm [Recovered/Resolved]
  - Migraine [Not Recovered/Not Resolved]
  - Vasospasm [Unknown]
  - Headache [Recovered/Resolved]
  - Lacrimation increased [Unknown]
  - Eye discharge [Unknown]
